FAERS Safety Report 9668150 (Version 1)
Quarter: 2013Q4

REPORT INFORMATION
  Report Type: Spontaneous
  Country: US (occurrence: US)
  Receive Date: 20131104
  Receipt Date: 20131104
  Transmission Date: 20140711
  Serious: No
  Sender: FDA-Public Use
  Company Number: US-PFIZER INC-2013312608

PATIENT
  Age: 40 Year
  Sex: Female
  Weight: 90.7 kg

DRUGS (3)
  1. CHANTIX [Suspect]
     Indication: SMOKING CESSATION THERAPY
     Dosage: 0.5 MG, 1X/DAY
     Dates: start: 20131020
  2. TRAZODONE HYDROCHLORIDE [Suspect]
     Indication: SLEEP DISORDER
     Dosage: 200 MG AT BEDTIME
  3. XANAX [Concomitant]
     Indication: ANXIETY
     Dosage: 1 MG, 4X/DAY

REACTIONS (2)
  - Nausea [Not Recovered/Not Resolved]
  - Abnormal dreams [Not Recovered/Not Resolved]
